FAERS Safety Report 5091737-2 (Version None)
Quarter: 2006Q3

REPORT INFORMATION
  Report Type: 
  Country: None (occurrence: None)
  Receive Date: 20060829
  Receipt Date: 20060328
  Transmission Date: 20061208
  Serious: Yes (Other)
  Sender: FDA-Public Use
  Company Number: US-BRISTOL-MYERS SQUIBB COMPANY-13333554

PATIENT
  Age: 46 Year
  Sex: Male
  Weight: 58 kg

DRUGS (12)
  1. ERBITUX [Suspect]
     Indication: NEOPLASM MALIGNANT
     Dosage: HELD FOR ONE WEEK DUE TO A SEVERE SKIN REACTION.  RESTARTED ON 23-MAR-2006.
     Route: 042
     Dates: start: 20060222, end: 20060222
  2. TARCEVA [Suspect]
     Dosage: INIT. PRIOR TO FIRST CETUXIMAB DOSE/ HELD FOR 1 WEEK DUE TO SEVERE SKIN REACTION/REST. 23-MAR-2006.
  3. ALLEGRA [Concomitant]
  4. AMBIEN [Concomitant]
  5. BENADRYL [Concomitant]
     Indication: PREMEDICATION
     Dates: start: 20060222
  6. COMPAZINE [Concomitant]
  7. MS CONTIN [Concomitant]
  8. SALAGEN [Concomitant]
  9. SYNTHROID [Concomitant]
  10. TYLENOL [Concomitant]
     Indication: PREMEDICATION
     Dates: start: 20060222
  11. XANAX [Concomitant]
  12. ZYRTEC [Concomitant]
     Indication: PREMEDICATION
     Dates: start: 20060222

REACTIONS (3)
  - CHILLS [None]
  - PYREXIA [None]
  - SKIN REACTION [None]
